FAERS Safety Report 26218137 (Version 1)
Quarter: 2025Q4

REPORT INFORMATION
  Report Type: Spontaneous
  Country: US (occurrence: US)
  Receive Date: 20251231
  Receipt Date: 20251231
  Transmission Date: 20260118
  Serious: Yes (Hospitalization, Other)
  Sender: RANBAXY
  Company Number: US-SUN PHARMACEUTICAL INDUSTRIES INC-2025R1-544302

PATIENT
  Age: 88 Year
  Sex: Female

DRUGS (1)
  1. METHOTREXATE [Suspect]
     Active Substance: METHOTREXATE
     Indication: Iritis
     Dosage: UNK
     Route: 065

REACTIONS (5)
  - Pulmonary toxicity [Unknown]
  - Acute respiratory failure [Unknown]
  - Idiopathic interstitial pneumonia [Unknown]
  - Pulmonary hypertension [Unknown]
  - Toxicity to various agents [Unknown]
